FAERS Safety Report 12173144 (Version 2)
Quarter: 2016Q3

REPORT INFORMATION
  Report Type: Report from Study
  Country: US (occurrence: US)
  Receive Date: 20160311
  Receipt Date: 20160806
  Transmission Date: 20161109
  Serious: Yes (Death, Other)
  Sender: FDA-Public Use
  Company Number: US-ABBVIE-16K-163-1576924-00

PATIENT
  Age: 70 Year
  Sex: Male
  Weight: 72.19 kg

DRUGS (2)
  1. HUMIRA [Suspect]
     Active Substance: ADALIMUMAB
     Indication: RHEUMATOID ARTHRITIS
     Route: 058
     Dates: start: 20150512, end: 20160302
  2. METHOTREXATE. [Concomitant]
     Active Substance: METHOTREXATE
     Indication: PRODUCT USED FOR UNKNOWN INDICATION
     Dates: start: 201409, end: 201603

REACTIONS (10)
  - Pancreatic carcinoma [Fatal]
  - Haemangioma of liver [Unknown]
  - Weight decreased [Unknown]
  - Splenic vein occlusion [Unknown]
  - Arteriosclerosis [Unknown]
  - Back pain [Unknown]
  - Abdominal pain upper [Unknown]
  - Flank pain [Unknown]
  - Urine abnormality [Unknown]
  - Intervertebral disc degeneration [Unknown]

NARRATIVE: CASE EVENT DATE: 20150727
